FAERS Safety Report 6230199-6 (Version None)
Quarter: 2009Q2

REPORT INFORMATION
  Report Type: 
  Country: None (occurrence: None)
  Receive Date: 20090615
  Receipt Date: 20090602
  Transmission Date: 20091009
  Serious: Yes (Other)
  Sender: FDA-Public Use
  Company Number: TR-MYLANLABS-2009S1009682

PATIENT
  Age: 58 Year
  Sex: Female

DRUGS (2)
  1. CEFEPIME [Suspect]
     Indication: PYELONEPHRITIS
     Dosage: 2 X 2G
  2. CLARITHROMYCIN [Suspect]
     Indication: PYELONEPHRITIS
     Dosage: 2 X 500

REACTIONS (1)
  - STATUS EPILEPTICUS [None]
